FAERS Safety Report 9210278 (Version 2)
Quarter: 2013Q2

REPORT INFORMATION
  Report Type: Spontaneous
  Country: ID (occurrence: ID)
  Receive Date: 20130404
  Receipt Date: 20130408
  Transmission Date: 20140414
  Serious: Yes (Hospitalization, Other)
  Sender: FDA-Public Use
  Company Number: ID-ROCHE-1208919

PATIENT
  Age: 81 Year
  Sex: Female

DRUGS (1)
  1. BONVIVA [Suspect]
     Indication: OSTEOPOROSIS
     Route: 042
     Dates: start: 20130321

REACTIONS (3)
  - Swelling face [Unknown]
  - Eyelid oedema [Unknown]
  - Diarrhoea [Recovered/Resolved]
